FAERS Safety Report 8358286-7 (Version None)
Quarter: 2012Q2

REPORT INFORMATION
  Report Type: 
  Country: None (occurrence: None)
  Receive Date: 20120514
  Receipt Date: 20120430
  Transmission Date: 20120825
  Serious: Yes (Other)
  Sender: FDA-Public Use
  Company Number: CHPA2012US010183

PATIENT
  Age: 41 Year
  Sex: Male

DRUGS (7)
  1. EXCEDRIN EXTRA STRENGTH TABLETS [Suspect]
     Indication: HEADACHE
     Dosage: 2 DF, PRN
     Route: 048
     Dates: start: 19990101
  2. FLEXERIL [Concomitant]
  3. MELOXICAM [Concomitant]
  4. NORFLEX [Concomitant]
  5. EXCEDRIN EXTRA STRENGTH TABLETS [Suspect]
     Dosage: 1-2 CAPLETS
     Route: 048
     Dates: start: 20110101
  6. DRUG THERAPY NOS [Concomitant]
     Indication: PAIN
  7. MUSCLE RELAXANTS [Concomitant]

REACTIONS (20)
  - DIZZINESS [None]
  - UNDERDOSE [None]
  - SPINAL COLUMN STENOSIS [None]
  - EXOSTOSIS [None]
  - ABDOMINAL DISCOMFORT [None]
  - APHONIA [None]
  - CEREBRAL ARTERY OCCLUSION [None]
  - ROAD TRAFFIC ACCIDENT [None]
  - DYSPHAGIA [None]
  - TENDON INJURY [None]
  - LOSS OF CONSCIOUSNESS [None]
  - THERAPEUTIC RESPONSE DECREASED [None]
  - BLOOD PRESSURE INCREASED [None]
  - HEPATIC STEATOSIS [None]
  - HYPOAESTHESIA [None]
  - THERAPEUTIC RESPONSE UNEXPECTED [None]
  - INTERVERTEBRAL DISC PROTRUSION [None]
  - DYSPNOEA [None]
  - SPEECH DISORDER [None]
  - TREMOR [None]
